FAERS Safety Report 9822371 (Version 2)
Quarter: 2014Q1

REPORT INFORMATION
  Report Type: Spontaneous
  Country: IT (occurrence: IT)
  Receive Date: 20140116
  Receipt Date: 20140124
  Transmission Date: 20141002
  Serious: Yes (Hospitalization)
  Sender: FDA-Public Use
  Company Number: IT-JNJFOC-20140105312

PATIENT
  Age: 58 Year
  Sex: Male

DRUGS (1)
  1. DUROGESIC [Suspect]
     Indication: LIP AND/OR ORAL CAVITY CANCER
     Route: 062
     Dates: start: 20130109, end: 20130112

REACTIONS (1)
  - Sopor [Not Recovered/Not Resolved]
